FAERS Safety Report 24211699 (Version 3)
Quarter: 2025Q2

REPORT INFORMATION
  Report Type: Spontaneous
  Country: US (occurrence: US)
  Receive Date: 20240814
  Receipt Date: 20250506
  Transmission Date: 20250717
  Serious: No
  Sender: ELI LILLY AND COMPANY
  Company Number: US-ELI_LILLY_AND_COMPANY-US202408008617

PATIENT
  Age: 69 Year
  Sex: Female

DRUGS (4)
  1. OMVOH [Suspect]
     Active Substance: MIRIKIZUMAB-MRKZ
     Indication: Colitis ulcerative
     Route: 065
     Dates: start: 20240620
  2. OMVOH [Suspect]
     Active Substance: MIRIKIZUMAB-MRKZ
     Indication: Crohn^s disease
  3. OMVOH [Suspect]
     Active Substance: MIRIKIZUMAB-MRKZ
     Indication: Crohn^s disease
     Route: 065
  4. PREDNISONE [Suspect]
     Active Substance: PREDNISONE
     Indication: Product used for unknown indication
     Route: 065

REACTIONS (2)
  - Alopecia [Unknown]
  - Dry eye [Unknown]
